FAERS Safety Report 16672289 (Version 1)
Quarter: 2019Q3

REPORT INFORMATION
  Report Type: Spontaneous
  Country: FR (occurrence: FR)
  Receive Date: 20190806
  Receipt Date: 20190806
  Transmission Date: 20191004
  Serious: Yes (Hospitalization)
  Sender: FDA-Public Use
  Company Number: FR-TEVA-2019-FR-1087816

PATIENT
  Age: 66 Year
  Sex: Female

DRUGS (6)
  1. TEMERIT 5 MG, COMPRIM? QUADRIS?CABLE [Suspect]
     Active Substance: NEBIVOLOL HYDROCHLORIDE
     Indication: HYPERTENSION
     Route: 048
     Dates: end: 20190607
  2. PRETERAX [INDAPAMIDE/PERINDOPRIL ERBUMINE] [Suspect]
     Active Substance: INDAPAMIDE\PERINDOPRIL ERBUMINE
     Indication: HYPERTENSION
     Dosage: 2 DOSAGE FORMS
     Route: 048
     Dates: end: 20190607
  3. FLECA?NE L.P. 200 MG, G?LULE ? LIB?RATION PROLONG?E [Suspect]
     Active Substance: FLECAINIDE ACETATE
     Indication: ARRHYTHMIA SUPRAVENTRICULAR
     Dosage: 1 DOSAGE FORMS
     Route: 048
     Dates: end: 20190607
  4. ALLOPURINOL. [Suspect]
     Active Substance: ALLOPURINOL
     Indication: PRODUCT USED FOR UNKNOWN INDICATION
     Route: 048
     Dates: end: 20190607
  5. PREVISCAN [FLUINDIONE] [Suspect]
     Active Substance: FLUINDIONE
     Indication: ARRHYTHMIA SUPRAVENTRICULAR
     Dosage: 1 DOSAGE FORMS
     Route: 048
     Dates: end: 20190607
  6. ZANIDIP 10 MG, COMPRIM? PELLICUL? S?CABLE [Suspect]
     Active Substance: LERCANIDIPINE HYDROCHLORIDE
     Indication: HYPERTENSION
     Route: 048
     Dates: end: 20190607

REACTIONS (2)
  - Acute kidney injury [Recovered/Resolved]
  - Hypovolaemic shock [Recovered/Resolved]

NARRATIVE: CASE EVENT DATE: 20190607
